FAERS Safety Report 12816776 (Version 1)
Quarter: 2016Q4

REPORT INFORMATION
  Report Type: Spontaneous
  Country: US (occurrence: US)
  Receive Date: 20161006
  Receipt Date: 20161006
  Transmission Date: 20170207
  Serious: No
  Sender: FDA-Public Use
  Company Number: US-NOVEN PHARMACEUTICALS, INC.-US2016001728

PATIENT

DRUGS (2)
  1. COMBIPATCH [Suspect]
     Active Substance: ESTRADIOL\NORETHINDRONE ACETATE
     Dosage: LOWER DOSAGE, UNKNOWN
     Route: 062
     Dates: start: 2015
  2. COMBIPATCH [Suspect]
     Active Substance: ESTRADIOL\NORETHINDRONE ACETATE
     Indication: PRODUCT USED FOR UNKNOWN INDICATION
     Dosage: UNK, EVERY FIVE OR SIX DAYS
     Route: 062
     Dates: start: 2011, end: 2015

REACTIONS (8)
  - Palpitations [Unknown]
  - Uterine leiomyoma [Unknown]
  - Nausea [Unknown]
  - Chills [Unknown]
  - Hot flush [Unknown]
  - Feeling cold [Unknown]
  - Epinephrine increased [Unknown]
  - Inappropriate schedule of drug administration [Unknown]
